FAERS Safety Report 5946192-4 (Version None)
Quarter: 2008Q4

REPORT INFORMATION
  Report Type: 
  Country: None (occurrence: None)
  Receive Date: 20081106
  Receipt Date: 20081029
  Transmission Date: 20090506
  Serious: Yes (Hospitalization)
  Sender: FDA-Public Use
  Company Number: 2008AL011486

PATIENT
  Age: 31 Year
  Sex: Female

DRUGS (2)
  1. PROPYLTHIOURACIL TAB [Suspect]
     Indication: BASEDOW'S DISEASE
     Dosage: 200 MG;BID
  2. AMOXICILLIN AND CLAVULANATE POTASSIUM [Concomitant]

REACTIONS (7)
  - AGRANULOCYTOSIS [None]
  - BLOOD IRON DECREASED [None]
  - DRUG EXPOSURE DURING PREGNANCY [None]
  - HAEMOGLOBIN DECREASED [None]
  - MARROW HYPERPLASIA [None]
  - POST PROCEDURAL HYPOTHYROIDISM [None]
  - PREGNANCY [None]
